FAERS Safety Report 4272468-5 (Version None)
Quarter: 2004Q1

REPORT INFORMATION
  Report Type: 
  Country: None (occurrence: None)
  Receive Date: 20040115
  Receipt Date: 20011025
  Transmission Date: 20041129
  Serious: Yes (Hospitalization, Other)
  Sender: FDA-Public Use
  Company Number: WAES 01104486

PATIENT
  Age: 77 Year
  Sex: Female
  Weight: 80 kg

DRUGS (6)
  1. TYLENOL [Concomitant]
  2. ASPIRIN [Concomitant]
  3. VIOXX [Suspect]
     Route: 048
     Dates: start: 19990929, end: 19991201
  4. VIOXX [Suspect]
     Route: 048
     Dates: start: 20010305, end: 20010101
  5. VIOXX [Suspect]
     Route: 048
     Dates: start: 19990929, end: 19991201
  6. VIOXX [Suspect]
     Route: 048
     Dates: start: 20010305, end: 20010101

REACTIONS (29)
  - ACTIVITIES OF DAILY LIVING IMPAIRED [None]
  - BLOOD CHOLESTEROL INCREASED [None]
  - BLOOD PRESSURE INCREASED [None]
  - BUNION [None]
  - CARDIAC FAILURE CONGESTIVE [None]
  - CARDIOVASCULAR DISORDER [None]
  - CONSTIPATION [None]
  - FALL [None]
  - GASTRIC DISORDER [None]
  - HEADACHE [None]
  - HEART RATE INCREASED [None]
  - HYPERHIDROSIS [None]
  - HYPERTENSION [None]
  - HYPERTENSIVE HEART DISEASE [None]
  - JOINT SPRAIN [None]
  - LOCALISED OSTEOARTHRITIS [None]
  - MITRAL VALVE INCOMPETENCE [None]
  - MUSCLE CRAMP [None]
  - MYALGIA [None]
  - NOCTURIA [None]
  - OEDEMA PERIPHERAL [None]
  - RENAL FAILURE [None]
  - ROTATOR CUFF SYNDROME [None]
  - SINUSITIS [None]
  - SPONDYLOSIS [None]
  - TRICUSPID VALVE INCOMPETENCE [None]
  - VENTRICULAR EXTRASYSTOLES [None]
  - VENTRICULAR HYPERTROPHY [None]
  - WOUND INFECTION [None]
